FAERS Safety Report 8934881 (Version 1)
Quarter: 2012Q4

REPORT INFORMATION
  Report Type: 
  Country: US (occurrence: US)
  Receive Date: 20121129
  Receipt Date: 20121129
  Transmission Date: 20130627
  Serious: No
  Sender: FDA-Public Use
  Company Number: US-009507513-1211USA010844

PATIENT
  Age: 18 Year
  Weight: 81.63 kg

DRUGS (1)
  1. IMPLANON [Suspect]
     Indication: CONTRACEPTION
     Dosage: 1 DF, UNK
     Dates: start: 201206

REACTIONS (8)
  - Metrorrhagia [Unknown]
  - Implant site pain [Unknown]
  - Alopecia [Unknown]
  - Headache [Unknown]
  - Inflammation [Unknown]
  - Device breakage [Unknown]
  - Device damage [Unknown]
  - Product quality issue [Unknown]
